FAERS Safety Report 15904027 (Version 1)
Quarter: 2019Q1

REPORT INFORMATION
  Report Type: Spontaneous
  Country: US (occurrence: US)
  Receive Date: 20190204
  Receipt Date: 20190204
  Transmission Date: 20190417
  Serious: No
  Sender: FDA-Public Use
  Company Number: US-GLENMARK PHARMACEUTICALS-2018GMK038582

PATIENT

DRUGS (1)
  1. MUPIROCIN. [Suspect]
     Active Substance: MUPIROCIN
     Indication: RASH
     Dosage: UNK, TID
     Route: 061
     Dates: start: 20181203

REACTIONS (3)
  - Expired product administered [Unknown]
  - Drug effective for unapproved indication [Unknown]
  - Product closure issue [Unknown]

NARRATIVE: CASE EVENT DATE: 20181203
